FAERS Safety Report 4293656-8 (Version None)
Quarter: 2004Q1

REPORT INFORMATION
  Report Type: 
  Country: None (occurrence: None)
  Receive Date: 20040212
  Receipt Date: 20040204
  Transmission Date: 20041129
  Serious: Yes (Hospitalization)
  Sender: FDA-Public Use
  Company Number: PHEH2004US01597

PATIENT
  Age: 70 Year
  Sex: Female

DRUGS (4)
  1. EXELON [Suspect]
     Indication: DEMENTIA ALZHEIMER'S TYPE
     Dosage: 6 MG, BID
     Route: 048
     Dates: start: 20030609, end: 20031226
  2. BENAZEPRIL HCL [Concomitant]
  3. CARDURA [Concomitant]
  4. PREMARIN [Concomitant]

REACTIONS (9)
  - ABDOMINAL PAIN [None]
  - BLOOD CREATININE INCREASED [None]
  - BLOOD UREA INCREASED [None]
  - JAUNDICE [None]
  - KIDNEY INFECTION [None]
  - LIVER DISORDER [None]
  - MENINGITIS [None]
  - PYREXIA [None]
  - RENAL IMPAIRMENT [None]
